FAERS Safety Report 5485082-0 (Version None)
Quarter: 2007Q4

REPORT INFORMATION
  Report Type: 
  Country: None (occurrence: None)
  Receive Date: 20071015
  Receipt Date: 20071011
  Transmission Date: 20080405
  Serious: Yes (Death)
  Sender: FDA-Public Use
  Company Number: PHBS2007JP15057

PATIENT

DRUGS (1)
  1. VOLTAREN [Suspect]
     Indication: BACK PAIN
     Route: 048

REACTIONS (1)
  - CARDIAC FAILURE [None]
